FAERS Safety Report 4453881-X (Version None)
Quarter: 2004Q3

REPORT INFORMATION
  Report Type: 
  Country: None (occurrence: None)
  Receive Date: 20040826
  Receipt Date: 20040611
  Transmission Date: 20050211
  Serious: No
  Sender: FDA-Public Use
  Company Number: WAES 0406USA01393

PATIENT
  Age: 70 Year
  Sex: Female

DRUGS (1)
  1. ZETIA [Suspect]
     Dosage: PO
     Route: 048

REACTIONS (2)
  - ERYTHEMA [None]
  - SWELLING FACE [None]
